FAERS Safety Report 9216803 (Version 2)
Quarter: 2013Q3

REPORT INFORMATION
  Report Type: Spontaneous
  Country: US (occurrence: US)
  Receive Date: 20130408
  Receipt Date: 20130701
  Transmission Date: 20140515
  Serious: Yes (Hospitalization, Other)
  Sender: FDA-Public Use
  Company Number: US-PFIZER INC-2013109013

PATIENT
  Age: 67 Year
  Sex: Female

DRUGS (6)
  1. EFFEXOR XR [Suspect]
     Indication: ANXIETY
     Dosage: 37.5 MG, 1 DAILY FOR 3 DAYS
     Dates: start: 20130228, end: 201303
  2. EFFEXOR XR [Suspect]
     Dosage: 37.5 MG, 2 DAILY FOR 3 DAYS
     Dates: start: 201303, end: 201303
  3. EFFEXOR XR [Suspect]
     Dosage: 37.5 MG, 3 DAILY UPTO 2ND DAY
     Dates: start: 201303, end: 20130313
  4. TRIAMTERENE [Concomitant]
     Dosage: 37.5/25 DAILY
  5. OMEPRAZOLE [Concomitant]
     Dosage: 20 MG, 2X DAILY
  6. LOVASTATIN [Concomitant]
     Dosage: 10 MG, DAILY

REACTIONS (1)
  - Hypertension [Recovered/Resolved]
